FAERS Safety Report 4889513-6 (Version None)
Quarter: 2006Q1

REPORT INFORMATION
  Report Type: 
  Country: None (occurrence: None)
  Receive Date: 20060120
  Receipt Date: 20060111
  Transmission Date: 20060701
  Serious: Yes (Other)
  Sender: FDA-Public Use
  Company Number: 2006006833

PATIENT
  Sex: Female
  Weight: 130.6359 kg

DRUGS (11)
  1. CELEBREX [Suspect]
     Indication: PAIN
     Dates: start: 20030101, end: 20030101
  2. BEXTRA [Suspect]
     Indication: PAIN
     Dates: start: 20040101, end: 20040101
  3. NEURONTIN [Suspect]
     Indication: PAIN
     Dosage: 300 MG (300 MG DAILY, INTERVAL: EVERY DAY)
     Dates: start: 20040101, end: 20040101
  4. LYRICA [Suspect]
     Indication: PAIN
     Dosage: 50 MG, 3 IN 1 D, ORAL
     Route: 048
     Dates: start: 20060105
  5. OXYCONTIN (OXYCODONE HYRODHCLORIDE) [Concomitant]
  6. COZAAR [Concomitant]
  7. ETANERCEPT (ETANERCEPT) [Concomitant]
  8. PROVIGIL [Concomitant]
  9. COMPAZINE [Concomitant]
  10. ACIPHEX [Concomitant]
  11. SUDAFED 12 HOUR [Concomitant]

REACTIONS (16)
  - AREFLEXIA [None]
  - COGNITIVE DISORDER [None]
  - DIZZINESS [None]
  - DRUG INEFFECTIVE [None]
  - DYSARTHRIA [None]
  - FACIAL PALSY [None]
  - FALL [None]
  - HEADACHE [None]
  - INADEQUATE ANALGESIA [None]
  - MEMORY IMPAIRMENT [None]
  - RASH [None]
  - SEDATION [None]
  - UPPER RESPIRATORY TRACT INFECTION [None]
  - VERTIGO [None]
  - VISION BLURRED [None]
  - VISUAL FIELD DEFECT [None]
